FAERS Safety Report 7180569-7 (Version None)
Quarter: 2010Q4

REPORT INFORMATION
  Report Type: 
  Country: None (occurrence: None)
  Receive Date: 20101221
  Receipt Date: 20101214
  Transmission Date: 20110411
  Serious: No
  Sender: FDA-Public Use
  Company Number: US-PFIZER INC-2010172074

PATIENT
  Sex: Female

DRUGS (3)
  1. GENOTROPIN [Suspect]
     Indication: GROWTH RETARDATION
     Dosage: 1.5 MG, UNK
     Dates: start: 20070101
  2. LEVOTHYROXINE [Concomitant]
     Indication: GROWTH RETARDATION
     Dosage: UNK
  3. HYDROCORTISONE [Concomitant]
     Indication: GROWTH RETARDATION
     Dosage: UNK

REACTIONS (1)
  - DRUG INEFFECTIVE [None]
